FAERS Safety Report 6024712-1 (Version None)
Quarter: 2008Q4

REPORT INFORMATION
  Report Type: 
  Country: None (occurrence: None)
  Receive Date: 20081231
  Receipt Date: 20081223
  Transmission Date: 20090506
  Serious: Yes (Death)
  Sender: FDA-Public Use
  Company Number: US-ASTRAZENECA-2008AC03277

PATIENT
  Age: 56 Year
  Sex: Female

DRUGS (6)
  1. QUETIAPINE [Suspect]
     Route: 048
  2. CARBAMAZEPINE [Suspect]
     Route: 048
  3. DULOXETINE [Suspect]
     Route: 048
  4. LAMOTRIGINE [Suspect]
     Route: 048
  5. LORAZEPAM [Suspect]
     Route: 048
  6. IBUPROFEN TABLETS [Suspect]
     Route: 048

REACTIONS (1)
  - COMPLETED SUICIDE [None]
